FAERS Safety Report 11535141 (Version 1)
Quarter: 2015Q3

REPORT INFORMATION
  Report Type: Spontaneous
  Country: US (occurrence: US)
  Receive Date: 20150903
  Receipt Date: 20150903
  Transmission Date: 20151125
  Serious: No
  Sender: FDA-Public Use
  Company Number: US-ELI_LILLY_AND_COMPANY-US201103004737

PATIENT
  Sex: Female

DRUGS (3)
  1. HUMALOG MIX50/50 [Suspect]
     Active Substance: INSULIN LISPRO
     Dosage: 12 U, EACH EVENING
     Dates: start: 200903
  2. HUMALOG MIX50/50 [Suspect]
     Active Substance: INSULIN LISPRO
     Indication: DIABETES MELLITUS
     Dosage: 12 U, EACH MORNING
     Dates: start: 200903
  3. HUMALOG MIX50/50 [Suspect]
     Active Substance: INSULIN LISPRO
     Dosage: 10 U, OTHER
     Dates: start: 200903

REACTIONS (2)
  - Wrong drug administered [Recovered/Resolved]
  - Drug dispensing error [Recovered/Resolved]
